FAERS Safety Report 7944873-4 (Version None)
Quarter: 2011Q4

REPORT INFORMATION
  Report Type: 
  Country: None (occurrence: None)
  Receive Date: 20111129
  Receipt Date: 20110829
  Transmission Date: 20120403
  Serious: No
  Sender: FDA-Public Use
  Company Number: US-MYLANLABS-2011S1018215

PATIENT
  Age: 30 Year
  Sex: Female
  Weight: 90.27 kg

DRUGS (4)
  1. AMLODIPINE BESYLATE [Suspect]
     Indication: BLOOD PRESSURE ABNORMAL
     Route: 048
     Dates: start: 20110301, end: 20110301
  2. AMLODIPINE BESYLATE [Suspect]
     Route: 048
     Dates: start: 20110101
  3. IBUPROFEN [Concomitant]
  4. FLEXERIL [Concomitant]

REACTIONS (1)
  - VISION BLURRED [None]
